FAERS Safety Report 5296935-0 (Version None)
Quarter: 2007Q1

REPORT INFORMATION
  Report Type: 
  Country: None (occurrence: None)
  Receive Date: 20070201
  Receipt Date: 20061005
  Transmission Date: 20070707
  Serious: No
  Sender: FDA-Public Use
  Company Number: 2006PV022577

PATIENT
  Age: 56 Year
  Sex: Female
  Weight: 158.759 kg

DRUGS (2)
  1. BYETTA [Suspect]
     Indication: DIABETES MELLITUS NON-INSULIN-DEPENDENT
     Dosage: 10 MCG;BID;SC
     Route: 058
     Dates: start: 20060701
  2. GLYBURIDE AND METFORMIN HCL [Concomitant]

REACTIONS (1)
  - MEDICATION ERROR [None]
